FAERS Safety Report 14641257 (Version 3)
Quarter: 2018Q4

REPORT INFORMATION
  Report Type: Spontaneous
  Country: PL (occurrence: PL)
  Receive Date: 20180315
  Receipt Date: 20181228
  Transmission Date: 20190204
  Serious: Yes (Hospitalization, Other)
  Sender: FDA-Public Use
  Company Number: PL-AUROBINDO-AUR-APL-2018-013685

PATIENT
  Age: 32 Year
  Sex: Male

DRUGS (1)
  1. TERBINAFINE. [Suspect]
     Active Substance: TERBINAFINE
     Indication: TRICHOPHYTOSIS
     Dosage: 250 MG, QD
     Route: 065

REACTIONS (6)
  - Therapeutic response decreased [Unknown]
  - Rash erythematous [Unknown]
  - Oedema [Unknown]
  - Subcutaneous abscess [Recovered/Resolved]
  - Condition aggravated [Recovering/Resolving]
  - Trichophytosis [Recovering/Resolving]
